FAERS Safety Report 9358843 (Version 2)
Quarter: 2013Q3

REPORT INFORMATION
  Report Type: Spontaneous
  Country: US (occurrence: US)
  Receive Date: 20130620
  Receipt Date: 20130729
  Transmission Date: 20140515
  Serious: Yes (Other)
  Sender: FDA-Public Use
  Company Number: US-PFIZER INC-2013185472

PATIENT
  Age: 58 Year
  Sex: Male
  Weight: 81.63 kg

DRUGS (2)
  1. LYRICA [Suspect]
     Indication: BURNING SENSATION
     Dosage: 75 MG DAILY
     Dates: start: 201303
  2. LYRICA [Suspect]
     Indication: PAIN IN EXTREMITY

REACTIONS (4)
  - Blood triglycerides increased [Unknown]
  - Intervertebral disc disorder [Unknown]
  - Nervous system disorder [Unknown]
  - Drug ineffective [Unknown]
